FAERS Safety Report 8871831 (Version 1)
Quarter: 2012Q4

REPORT INFORMATION
  Report Type: 
  Country: US (occurrence: US)
  Receive Date: 20121030
  Receipt Date: 20121030
  Transmission Date: 20130627
  Serious: Yes (Other)
  Sender: FDA-Public Use
  Company Number: US-INCYTE CORPORATION-2012IN002112

PATIENT
  Sex: Female

DRUGS (1)
  1. JAKAFI [Suspect]
     Indication: MYELOFIBROSIS
     Dosage: 10 mg, bid
     Route: 048
     Dates: end: 20121009

REACTIONS (8)
  - Hip surgery [Unknown]
  - Weight decreased [Unknown]
  - Night sweats [Unknown]
  - Pain in extremity [Unknown]
  - Back pain [Unknown]
  - Cough [Unknown]
  - Abdominal pain [Unknown]
  - Hypoaesthesia [Unknown]
